FAERS Safety Report 4380232-1 (Version None)
Quarter: 2004Q2

REPORT INFORMATION
  Report Type: 
  Country: None (occurrence: None)
  Receive Date: 20040616
  Receipt Date: 20040616
  Transmission Date: 20050107
  Serious: Yes (Hospitalization)
  Sender: FDA-Public Use
  Company Number: None

PATIENT
  Sex: Female

DRUGS (2)
  1. LINEZOLID [Suspect]
     Indication: SKIN ULCER
     Dosage: 600 MG BID PO X 6 DAYS
     Route: 048
  2. LINEZOLID [Suspect]
     Indication: STAPHYLOCOCCAL INFECTION
     Dosage: 600 MG BID PO X 6 DAYS
     Route: 048

REACTIONS (1)
  - PANCYTOPENIA [None]
